FAERS Safety Report 6795616-1 (Version None)
Quarter: 2010Q2

REPORT INFORMATION
  Report Type: 
  Country: None (occurrence: None)
  Receive Date: 20100625
  Receipt Date: 20100615
  Transmission Date: 20101027
  Serious: Yes (Other)
  Sender: FDA-Public Use
  Company Number: NL-JNJFOC-20100605784

PATIENT
  Age: 73 Year
  Sex: Male

DRUGS (2)
  1. INFLIXIMAB [Suspect]
     Indication: MAJOR DEPRESSION
     Dosage: RECEIVED A SINGLE DOSE
     Route: 042
  2. PAROXETINE [Concomitant]

REACTIONS (1)
  - DYSARTHRIA [None]
